FAERS Safety Report 7734879-2 (Version None)
Quarter: 2011Q3

REPORT INFORMATION
  Report Type: 
  Country: None (occurrence: None)
  Receive Date: 20110907
  Receipt Date: 20110829
  Transmission Date: 20111222
  Serious: Yes (Hospitalization, Other)
  Sender: FDA-Public Use
  Company Number: PHHO2011KR14038

PATIENT
  Sex: Male
  Weight: 58 kg

DRUGS (4)
  1. METFORMIN HCL [Concomitant]
     Indication: DIABETES MELLITUS
     Dosage: 230 MG, QD
     Route: 048
  2. AFINITOR [Suspect]
     Indication: T-CELL LYMPHOMA
     Dosage: 5 MG, QD
     Route: 048
     Dates: start: 20110727, end: 20110828
  3. GLIMEPIRIDE [Concomitant]
     Indication: DIABETES MELLITUS
     Dosage: 2 MG, QD
     Route: 048
  4. CHOP [Concomitant]
     Dosage: UNK
     Dates: start: 20110727

REACTIONS (1)
  - FEBRILE NEUTROPENIA [None]
